FAERS Safety Report 7259820-0 (Version None)
Quarter: 2011Q1

REPORT INFORMATION
  Report Type: 
  Country: None (occurrence: None)
  Receive Date: 20110130
  Receipt Date: 20100916
  Transmission Date: 20110831
  Serious: No
  Sender: FDA-Public Use
  Company Number: US-ABBOTT-10P-163-0671165-00

PATIENT
  Age: 70 Year
  Sex: Female

DRUGS (9)
  1. FOLIC ACID [Concomitant]
     Indication: SUPPLEMENTATION THERAPY
  2. GABAPENTIN [Concomitant]
     Indication: NERVOUS SYSTEM DISORDER
  3. PROTONIX [Concomitant]
     Indication: ABDOMINAL DISCOMFORT
  4. LISINOPRIL AND HYDROCHLOROTHIAZIDE [Concomitant]
     Indication: HYPERTENSION
  5. PREMARIN [Concomitant]
     Indication: HORMONE REPLACEMENT THERAPY
  6. REFRESH [Concomitant]
     Indication: EYE DISORDER
     Dosage: EYE DROPS
  7. HUMIRA [Suspect]
     Indication: RHEUMATOID ARTHRITIS
     Dates: start: 20100901
  8. MTX [Concomitant]
     Indication: RHEUMATOID ARTHRITIS
  9. PLAQUENIL [Concomitant]
     Indication: RHEUMATOID ARTHRITIS

REACTIONS (3)
  - INSOMNIA [None]
  - PRURITUS [None]
  - EYE IRRITATION [None]
